FAERS Safety Report 25733980 (Version 1)
Quarter: 2025Q3

REPORT INFORMATION
  Report Type: Report from Study
  Country: US (occurrence: US)
  Receive Date: 20250828
  Receipt Date: 20250828
  Transmission Date: 20251021
  Serious: Yes (Other)
  Sender: ALEXION PHARMACEUTICALS
  Company Number: US-AstraZeneca-CH-00937415A

PATIENT
  Sex: Female

DRUGS (1)
  1. DAPAGLIFLOZIN [Suspect]
     Active Substance: DAPAGLIFLOZIN
     Route: 065

REACTIONS (6)
  - Cardiac failure congestive [Unknown]
  - Tumour ablation [Unknown]
  - Atrial fibrillation [Unknown]
  - Insurance issue [Unknown]
  - Vein collapse [Unknown]
  - Tumour ablation [Unknown]
